FAERS Safety Report 10757887 (Version 1)
Quarter: 2015Q1

REPORT INFORMATION
  Report Type: Spontaneous
  Country: US (occurrence: US)
  Receive Date: 20150203
  Receipt Date: 20150203
  Transmission Date: 20150721
  Serious: Yes (Hospitalization)
  Sender: FDA-Public Use
  Company Number: US-SA-2015SA012670

PATIENT
  Age: 45 Year
  Sex: Female
  Weight: 102.3 kg

DRUGS (26)
  1. MUCINEX [Concomitant]
     Active Substance: GUAIFENESIN
  2. ROXICODONE [Concomitant]
     Active Substance: OXYCODONE HYDROCHLORIDE
  3. XANAX [Concomitant]
     Active Substance: ALPRAZOLAM
  4. CELEBREX [Concomitant]
     Active Substance: CELECOXIB
  5. LIDOCAINE. [Concomitant]
     Active Substance: LIDOCAINE
  6. SUDAFED [Concomitant]
     Active Substance: PSEUDOEPHEDRINE HYDROCHLORIDE
  7. SOMA [Concomitant]
     Active Substance: CARISOPRODOL
  8. TRILEPTAL [Concomitant]
     Active Substance: OXCARBAZEPINE
  9. DIPHENHYDRAMINE [Concomitant]
     Active Substance: DIPHENHYDRAMINE
  10. NORMAL SALINE [Concomitant]
     Active Substance: SODIUM CHLORIDE
  11. CIPRO [Concomitant]
     Active Substance: CIPROFLOXACIN HYDROCHLORIDE
  12. ACETAMINOPHEN. [Concomitant]
     Active Substance: ACETAMINOPHEN
  13. AMOXICILLIN. [Concomitant]
     Active Substance: AMOXICILLIN
  14. METOPROLOL [Concomitant]
     Active Substance: METOPROLOL
  15. DEXILANT [Concomitant]
     Active Substance: DEXLANSOPRAZOLE
  16. ASPIRIN. [Concomitant]
     Active Substance: ASPIRIN
  17. FABRAZYME [Suspect]
     Active Substance: AGALSIDASE BETA
     Indication: FABRY^S DISEASE
     Dosage: 105  MG EVERY TWO TO THREE WEEKS
     Route: 042
     Dates: start: 20110210
  18. HEPARIN [Concomitant]
     Active Substance: HEPARIN SODIUM
  19. VITAMIN D [Concomitant]
     Active Substance: CHOLECALCIFEROL
  20. LEXAPRO [Concomitant]
     Active Substance: ESCITALOPRAM OXALATE
  21. TOPAMAX [Concomitant]
     Active Substance: TOPIRAMATE
  22. MOBIC [Concomitant]
     Active Substance: MELOXICAM
  23. EPIPEN [Concomitant]
     Active Substance: EPINEPHRINE
  24. POTASSIUM [Concomitant]
     Active Substance: POTASSIUM
  25. MORPHINE [Concomitant]
     Active Substance: MORPHINE
  26. PRAVASTATIN [Concomitant]
     Active Substance: PRAVASTATIN\PRAVASTATIN SODIUM

REACTIONS (1)
  - Central nervous system neoplasm [Recovered/Resolved]
